FAERS Safety Report 6696301-7 (Version None)
Quarter: 2010Q2

REPORT INFORMATION
  Report Type: 
  Country: None (occurrence: None)
  Receive Date: 20100421
  Receipt Date: 20100408
  Transmission Date: 20101027
  Serious: Yes (Death)
  Sender: FDA-Public Use
  Company Number: 100415-0000330

PATIENT
  Age: 14 Year
  Sex: Male

DRUGS (5)
  1. COSMEGEN [Suspect]
     Indication: EWING'S SARCOMA
     Dosage: IV
     Route: 042
  2. ETOPOSIDE [Suspect]
     Indication: EWING'S SARCOMA
  3. VINCRISTINE [Suspect]
     Indication: EWING'S SARCOMA
  4. ADRIAMYCIN PFS [Suspect]
     Indication: EWING'S SARCOMA
  5. IFOSFAMIDE [Suspect]
     Indication: EWING'S SARCOMA

REACTIONS (1)
  - BACTERIAL SEPSIS [None]
